FAERS Safety Report 16062323 (Version 1)
Quarter: 2019Q1

REPORT INFORMATION
  Report Type: Other
  Country: CA (occurrence: CA)
  Receive Date: 20190312
  Receipt Date: 20190312
  Transmission Date: 20190418
  Serious: Yes (Death, Hospitalization, Other)
  Sender: FDA-Public Use
  Company Number: CA-PFIZER INC-2019105033

PATIENT
  Age: 39 Year
  Sex: Female

DRUGS (10)
  1. MYCOPHENOLATE MOFETIL. [Suspect]
     Active Substance: MYCOPHENOLATE MOFETIL
     Indication: PROPHYLAXIS AGAINST TRANSPLANT REJECTION
     Route: 065
  2. OSELTAMIVIR [Suspect]
     Active Substance: OSELTAMIVIR
     Dosage: 150 MG, 2X/DAY
     Route: 048
  3. ZANAMIVIR [Suspect]
     Active Substance: ZANAMIVIR
     Indication: INFLUENZA
     Dosage: 10 MG, 2X/DAY
     Route: 065
  4. METHYLPREDNISOLONE SODIUM SUCCINATE. [Suspect]
     Active Substance: METHYLPREDNISOLONE SODIUM SUCCINATE
     Indication: PROPHYLAXIS AGAINST TRANSPLANT REJECTION
     Dosage: 2 MG/KG, 1X/DAY
     Route: 042
  5. OSELTAMIVIR [Suspect]
     Active Substance: OSELTAMIVIR
     Indication: INFLUENZA
     Dosage: 75 MG, 2X/DAY
     Route: 048
  6. OSELTAMIVIR [Suspect]
     Active Substance: OSELTAMIVIR
     Dosage: 150 MG, 2X/DAY (1 EVERY 12 HOURS)
     Route: 048
  7. ZANAMIVIR [Suspect]
     Active Substance: ZANAMIVIR
     Dosage: 600 MG, 2X/DAY (EVERY 12 HOURS)
     Route: 042
  8. ALEMTUZUMAB [Suspect]
     Active Substance: ALEMTUZUMAB
     Route: 042
  9. CICLOSPORIN [Suspect]
     Active Substance: CYCLOSPORINE
     Indication: PROPHYLAXIS AGAINST TRANSPLANT REJECTION
     Route: 065
  10. OSELTAMIVIR [Suspect]
     Active Substance: OSELTAMIVIR
     Dosage: 150 MG, 2X/DAY
     Route: 048

REACTIONS (13)
  - Dyspnoea [Fatal]
  - Pathogen resistance [Fatal]
  - Pseudomonas infection [Fatal]
  - Viral mutation identified [Fatal]
  - Legionella infection [Fatal]
  - Cystitis haemorrhagic [Fatal]
  - Cytomegalovirus infection [Fatal]
  - Productive cough [Fatal]
  - Drug ineffective [Fatal]
  - Respiratory depression [Fatal]
  - Graft versus host disease [Fatal]
  - Influenza [Fatal]
  - Respiratory disorder [Fatal]
